FAERS Safety Report 7336334-0 (Version None)
Quarter: 2011Q1

REPORT INFORMATION
  Report Type: 
  Country: None (occurrence: None)
  Receive Date: 20110307
  Receipt Date: 20110224
  Transmission Date: 20110831
  Serious: Yes (Hospitalization)
  Sender: FDA-Public Use
  Company Number: FR-PFIZER INC-FR-WYE-G02939109

PATIENT
  Age: 41 Year
  Sex: Female

DRUGS (10)
  1. LYRICA [Suspect]
     Indication: PARTIAL SEIZURES
     Dosage: 600 MG, 1X/DAY
     Route: 048
     Dates: start: 20060901
  2. TYSABRI [Suspect]
     Indication: MULTIPLE SCLEROSIS
     Dosage: 300 MG, 1X/CYC
     Route: 042
     Dates: start: 20071127
  3. LASIX [Suspect]
     Indication: OEDEMA PERIPHERAL
     Dosage: 20 MG, 1X/DAY
     Route: 048
     Dates: start: 20080401
  4. ESCITALOPRAM [Suspect]
     Indication: DEPRESSION
     Dosage: 20 MG, 1X/DAY
     Route: 048
     Dates: start: 20080301
  5. EFFEXOR XR [Suspect]
     Indication: DEPRESSION
     Dosage: 75 MG, 1X/DAY
     Route: 048
     Dates: start: 20080701
  6. TAHOR [Suspect]
     Indication: HYPERCHOLESTEROLAEMIA
     Dosage: UNK
     Route: 048
  7. TRANXENE [Suspect]
     Indication: ANXIETY
     Dosage: 10 MG, 1X/DAY
     Route: 048
     Dates: start: 20080801
  8. NOZINAN [Suspect]
     Indication: DEPRESSION
     Dosage: 25 MG, 1X/DAY
     Route: 048
     Dates: start: 20080301
  9. RIVOTRIL [Suspect]
     Indication: NEURALGIA
     Dosage: 2 MG, 1X/DAY
     Route: 048
     Dates: start: 20030601
  10. ANAFRANIL [Suspect]
     Indication: NEURALGIA
     Dosage: 50 MG, 1X/DAY
     Route: 048
     Dates: start: 20070701

REACTIONS (1)
  - SUICIDE ATTEMPT [None]
